FAERS Safety Report 11205155 (Version 1)
Quarter: 2015Q2

REPORT INFORMATION
  Report Type: Spontaneous
  Country: GB (occurrence: GB)
  Receive Date: 20150622
  Receipt Date: 20150622
  Transmission Date: 20150821
  Serious: Yes (Disabling)
  Sender: FDA-Public Use
  Company Number: GB-JNJFOC-20150609048

PATIENT
  Age: 96 Year
  Sex: Female

DRUGS (6)
  1. RISPERIDONE. [Suspect]
     Active Substance: RISPERIDONE
     Indication: PARANOIA
     Dosage: AS NECESSARY AT 6 PM
     Route: 065
     Dates: start: 20140613, end: 20140623
  2. RISPERIDONE. [Suspect]
     Active Substance: RISPERIDONE
     Indication: PARANOIA
     Dosage: INCREASED DUE TO INADEQUATE RESPONSE
     Route: 065
     Dates: start: 20140624, end: 20141016
  3. RISPERIDONE. [Suspect]
     Active Substance: RISPERIDONE
     Indication: DEMENTIA ALZHEIMER^S TYPE
     Dosage: INCREASED DUE TO INADEQUATE RESPONSE
     Route: 065
     Dates: start: 20140624, end: 20141016
  4. RISPERIDONE. [Suspect]
     Active Substance: RISPERIDONE
     Indication: DEMENTIA ALZHEIMER^S TYPE
     Dosage: AS NECESSARY AT 6 PM
     Route: 065
     Dates: start: 20140613, end: 20140623
  5. RISPERIDONE. [Suspect]
     Active Substance: RISPERIDONE
     Indication: RESTLESSNESS
     Dosage: AS NECESSARY AT 6 PM
     Route: 065
     Dates: start: 20140613, end: 20140623
  6. RISPERIDONE. [Suspect]
     Active Substance: RISPERIDONE
     Indication: RESTLESSNESS
     Dosage: INCREASED DUE TO INADEQUATE RESPONSE
     Route: 065
     Dates: start: 20140624, end: 20141016

REACTIONS (4)
  - Head injury [Unknown]
  - Sedation [Recovered/Resolved]
  - Fall [Unknown]
  - Drug effect decreased [Unknown]

NARRATIVE: CASE EVENT DATE: 20140707
